FAERS Safety Report 23976413 (Version 1)
Quarter: 2024Q2

REPORT INFORMATION
  Report Type: Spontaneous
  Country: US (occurrence: None)
  Receive Date: 20240613
  Receipt Date: 20240613
  Transmission Date: 20240716
  Serious: No
  Sender: FDA-Public Use
  Company Number: None

PATIENT
  Age: 58 Year
  Sex: Male

DRUGS (4)
  1. INGREZZA [Suspect]
     Active Substance: VALBENAZINE
     Indication: Tardive dyskinesia
     Dosage: 40 MG DAILY ORAL
     Route: 048
     Dates: start: 20240325
  2. LISINOPRIL [Concomitant]
     Active Substance: LISINOPRIL
  3. Lithium Carbonate 450mg [Concomitant]
  4. Quetiapine ER 400mg [Concomitant]

REACTIONS (2)
  - Urinary incontinence [None]
  - Dysuria [None]

NARRATIVE: CASE EVENT DATE: 20240613
